FAERS Safety Report 20258302 (Version 1)
Quarter: 2021Q4

REPORT INFORMATION
  Report Type: Spontaneous
  Country: US (occurrence: None)
  Receive Date: 20211229
  Receipt Date: 20211229
  Transmission Date: 20220303
  Serious: Yes (Hospitalization)
  Sender: FDA-Public Use
  Company Number: None

PATIENT
  Sex: Female

DRUGS (1)
  1. DEFERASIROX [Suspect]
     Active Substance: DEFERASIROX
     Indication: Iron metabolism disorder
     Dosage: FREQUENCY : DAILY; 1 TABLE = 360 MG?
     Route: 048
     Dates: start: 20200506

REACTIONS (1)
  - Transfusion [None]
